FAERS Safety Report 19995743 (Version 1)
Quarter: 2021Q4

REPORT INFORMATION
  Report Type: Spontaneous
  Country: RU (occurrence: RU)
  Receive Date: 20211026
  Receipt Date: 20211026
  Transmission Date: 20220303
  Serious: Yes (Other)
  Sender: FDA-Public Use
  Company Number: RU-ADIENNEP-2021AD000466

PATIENT
  Age: 12 Year
  Sex: Female

DRUGS (7)
  1. THIOTEPA [Suspect]
     Active Substance: THIOTEPA
     Indication: Allogenic stem cell transplantation
  2. TREOSULFAN [Suspect]
     Active Substance: TREOSULFAN
     Indication: Allogenic stem cell transplantation
     Dosage: (42G/M2)
  3. FLUDARABINE [Suspect]
     Active Substance: FLUDARABINE PHOSPHATE
     Indication: Allogenic stem cell transplantation
  4. RITUXIMAB [Suspect]
     Active Substance: RITUXIMAB
     Indication: Allogenic stem cell transplantation
  5. TOCILIZUMAB [Suspect]
     Active Substance: TOCILIZUMAB
     Indication: Immunosuppressant drug therapy
     Dosage: ON DAY -1
  6. BORTEZOMIB [Suspect]
     Active Substance: BORTEZOMIB
     Indication: Immunosuppressant drug therapy
     Dosage: ON DAYS -5, -2, +2, +5
  7. ABATACEPT [Suspect]
     Active Substance: ABATACEPT
     Indication: Immunosuppressant drug therapy
     Dosage: ON DAYS -2, +7, +14, +28

REACTIONS (1)
  - Cytomegalovirus viraemia [Recovered/Resolved]
